FAERS Safety Report 8422571-0 (Version None)
Quarter: 2012Q2

REPORT INFORMATION
  Report Type: 
  Country: None (occurrence: None)
  Receive Date: 20120608
  Receipt Date: 20120604
  Transmission Date: 20120825
  Serious: Yes (Other)
  Sender: FDA-Public Use
  Company Number: JP-PFIZER INC-2012134029

PATIENT

DRUGS (1)
  1. ZITHROMAX [Suspect]
     Dosage: 1 DF, SINGLE

REACTIONS (2)
  - COLD SWEAT [None]
  - PALLOR [None]
